FAERS Safety Report 15231482 (Version 1)
Quarter: 2018Q3

REPORT INFORMATION
  Report Type: Spontaneous
  Country: JP (occurrence: JP)
  Receive Date: 20180802
  Receipt Date: 20180802
  Transmission Date: 20181010
  Serious: Yes (Hospitalization)
  Sender: FDA-Public Use
  Company Number: JP-ACTELION-A-CH2017-163913

PATIENT
  Age: 45 Year
  Sex: Female

DRUGS (20)
  1. BAKTAR [Concomitant]
     Active Substance: SULFAMETHOXAZOLE\TRIMETHOPRIM
  2. PREDONINE [Concomitant]
     Active Substance: PREDNISOLONE
  3. MAGNESIUM OXIDE. [Suspect]
     Active Substance: MAGNESIUM OXIDE
     Indication: CONSTIPATION
     Dosage: 330 MG, PRN
     Route: 048
     Dates: start: 20160623
  4. PREDNISOLONE. [Concomitant]
     Active Substance: PREDNISOLONE
  5. ZOMIG [Concomitant]
     Active Substance: ZOLMITRIPTAN
  6. OPSUMIT [Suspect]
     Active Substance: MACITENTAN
     Indication: PULMONARY ARTERIAL HYPERTENSION
     Dosage: 10 MG, QD
     Route: 048
     Dates: start: 20161220
  7. BERASUS [Concomitant]
     Active Substance: BERAPROST SODIUM
  8. WARFARIN [Suspect]
     Active Substance: WARFARIN
     Indication: THROMBOSIS PROPHYLAXIS
     Dosage: 4?4.75 MG, QD
     Route: 048
     Dates: start: 20150513
  9. VOLIBRIS [Concomitant]
     Active Substance: AMBRISENTAN
  10. FAMOTIDINE. [Concomitant]
     Active Substance: FAMOTIDINE
  11. BONALON [Concomitant]
     Active Substance: ALENDRONATE SODIUM
  12. WARFARIN [Suspect]
     Active Substance: WARFARIN
     Dosage: 3.5?4.75 MG, QD
     Route: 048
     Dates: end: 20170615
  13. UPTRAVI [Suspect]
     Active Substance: SELEXIPAG
     Dosage: UNK
     Route: 048
     Dates: start: 20170305
  14. FUROSEMIDE. [Suspect]
     Active Substance: FUROSEMIDE
     Indication: HYPERTENSION
     Dosage: 20 MG, QD
     Route: 048
     Dates: start: 20150424
  15. ADEMPAS [Suspect]
     Active Substance: RIOCIGUAT
     Indication: PULMONARY ARTERIAL HYPERTENSION
     Dosage: 2.5 MG, TID
     Route: 048
     Dates: start: 20150618, end: 20171214
  16. WARFARIN [Suspect]
     Active Substance: WARFARIN
     Dosage: 3.5?4.75 MG, QD
     Route: 048
     Dates: start: 20170617, end: 20171214
  17. NEXIUM [Concomitant]
     Active Substance: ESOMEPRAZOLE MAGNESIUM
  18. UPTRAVI [Suspect]
     Active Substance: SELEXIPAG
     Indication: PULMONARY ARTERIAL HYPERTENSION
     Dosage: 0.4 ? 1.2 MG, QD
     Route: 048
     Dates: start: 20170130, end: 20171206
  19. MAGNESIUM OXIDE. [Suspect]
     Active Substance: MAGNESIUM OXIDE
     Dosage: 330 MG, TID
     Route: 048
     Dates: end: 20171214
  20. ETIZOLAM [Concomitant]
     Active Substance: ETIZOLAM

REACTIONS (19)
  - Aspartate aminotransferase increased [Recovered/Resolved]
  - Iron deficiency anaemia [Recovered/Resolved]
  - Nausea [Recovering/Resolving]
  - Upper respiratory tract inflammation [Recovered/Resolved]
  - Diarrhoea [Recovered/Resolved]
  - Hot flush [Recovered/Resolved]
  - Bronchitis [Recovering/Resolving]
  - Influenza [Recovered/Resolved]
  - Vertigo [Recovered/Resolved]
  - Hepatic function abnormal [Recovered/Resolved]
  - Uterine haemorrhage [Recovered/Resolved]
  - Pulmonary hypertension [Recovering/Resolving]
  - Pain in extremity [Recovering/Resolving]
  - Headache [Not Recovered/Not Resolved]
  - Blood pressure decreased [Recovered/Resolved]
  - Purpura [Recovered/Resolved]
  - Cough [Recovering/Resolving]
  - Alanine aminotransferase increased [Recovered/Resolved]
  - Hypotension [Not Recovered/Not Resolved]

NARRATIVE: CASE EVENT DATE: 20170107
